FAERS Safety Report 9704844 (Version 1)
Quarter: 2013Q4

REPORT INFORMATION
  Report Type: Spontaneous
  Country: DE (occurrence: DE)
  Receive Date: 20131122
  Receipt Date: 20131122
  Transmission Date: 20140711
  Serious: Yes (Other)
  Sender: FDA-Public Use
  Company Number: DE-BRISTOL-MYERS SQUIBB COMPANY-19808682

PATIENT
  Age: 1 Day
  Sex: Male
  Weight: 2 kg

DRUGS (1)
  1. METFORMIN HCL [Suspect]
     Route: 064

REACTIONS (5)
  - Hypospadias [Recovered/Resolved with Sequelae]
  - Atrial septal defect [Unknown]
  - Developmental delay [Not Recovered/Not Resolved]
  - Adactyly [Not Recovered/Not Resolved]
  - Urethral valves [Recovered/Resolved with Sequelae]
